FAERS Safety Report 7741569-9 (Version None)
Quarter: 2011Q3

REPORT INFORMATION
  Report Type: 
  Country: None (occurrence: None)
  Receive Date: 20110909
  Receipt Date: 20110831
  Transmission Date: 20111222
  Serious: Yes (Hospitalization)
  Sender: FDA-Public Use
  Company Number: FR-ASTRAZENECA-2011SE52661

PATIENT
  Age: 49 Year
  Sex: Female

DRUGS (9)
  1. FUROSEMIDE [Concomitant]
  2. ALLOPURINOL [Concomitant]
  3. ACETAMINOPHEN [Concomitant]
  4. CELOCURINE [Suspect]
     Indication: INDUCTION OF ANAESTHESIA
     Route: 042
     Dates: start: 20110729, end: 20110729
  5. DIPRIVAN [Suspect]
     Indication: INDUCTION OF ANAESTHESIA
     Route: 042
     Dates: start: 20110729, end: 20110729
  6. SUFENTANIL CITRATE [Suspect]
     Indication: INDUCTION OF ANAESTHESIA
     Dosage: ONE SINGLE ADMINISTRATION
     Route: 042
     Dates: start: 20110729, end: 20110729
  7. ACUPAN [Concomitant]
  8. POTASSIUM CHLORIDE [Concomitant]
  9. CLONAZEPAM [Concomitant]

REACTIONS (4)
  - CYANOSIS [None]
  - URTICARIA [None]
  - BRONCHOSPASM [None]
  - CIRCULATORY COLLAPSE [None]
